FAERS Safety Report 9502624 (Version 4)
Quarter: 2013Q4

REPORT INFORMATION
  Report Type: Spontaneous
  Country: NL (occurrence: NL)
  Receive Date: 20130906
  Receipt Date: 20131028
  Transmission Date: 20140711
  Serious: Yes (Death, Hospitalization)
  Sender: FDA-Public Use
  Company Number: NL-AMGEN-NLDSP2013056511

PATIENT
  Age: 67 Year
  Sex: Male

DRUGS (8)
  1. XGEVA [Suspect]
     Indication: METASTASES TO BONE
     Dosage: 120 MG, Q4WK
     Route: 058
     Dates: start: 20130613
  2. XGEVA [Suspect]
     Indication: PROSTATE CANCER
     Dosage: UNK
     Route: 058
  3. PARACETAMOL [Concomitant]
     Route: 048
  4. CALCI CHEW [Concomitant]
     Route: 048
  5. CYPROTERONE ACETATE [Concomitant]
  6. DEXAMETHASON                       /00016001/ [Concomitant]
     Route: 042
  7. PAMORELIN [Concomitant]
  8. DICLOFENAC [Concomitant]

REACTIONS (4)
  - Subdural hygroma [Fatal]
  - Prostate cancer [Fatal]
  - Cerebral haemorrhage [Fatal]
  - Dyspnoea [Recovered/Resolved]
